FAERS Safety Report 7706285-8 (Version None)
Quarter: 2011Q3

REPORT INFORMATION
  Report Type: 
  Country: None (occurrence: None)
  Receive Date: 20110824
  Receipt Date: 20110816
  Transmission Date: 20111222
  Serious: Yes (Other)
  Sender: FDA-Public Use
  Company Number: CN-ALLERGAN-1111077US

PATIENT
  Age: 71 Year
  Sex: Female

DRUGS (1)
  1. BOTULINUM TOXIN TYPE A [Suspect]
     Indication: FACIAL SPASM
     Dosage: 100 UNITS, SINGLE
     Route: 030
     Dates: start: 20110814, end: 20110814

REACTIONS (1)
  - ANAPHYLACTIC REACTION [None]
